FAERS Safety Report 7310381-7 (Version None)
Quarter: 2011Q1

REPORT INFORMATION
  Report Type: 
  Country: None (occurrence: None)
  Receive Date: 20110224
  Receipt Date: 20110121
  Transmission Date: 20110831
  Serious: No
  Sender: FDA-Public Use
  Company Number: US-BRISTOL-MYERS SQUIBB COMPANY-15506603

PATIENT
  Age: 6 Decade
  Sex: Male

DRUGS (1)
  1. KOMBIGLYZE XR [Suspect]
     Dosage: KOMBIGLYZE XR 2.5
     Route: 048

REACTIONS (1)
  - PRURITUS [None]
